FAERS Safety Report 8485574-6 (Version None)
Quarter: 2012Q3

REPORT INFORMATION
  Report Type: 
  Country: None (occurrence: None)
  Receive Date: 20120703
  Receipt Date: 20120626
  Transmission Date: 20120928
  Serious: Yes (Hospitalization)
  Sender: FDA-Public Use
  Company Number: BR-SHIRE-ALL1-2012-03009

PATIENT
  Age: 34 Year
  Sex: Female

DRUGS (3)
  1. MESALAMINE [Concomitant]
     Indication: COLITIS ULCERATIVE
     Dosage: 500 MG, 1X/DAY:QD
     Route: 054
     Dates: start: 20120401
  2. MESALAMINE [Suspect]
     Indication: COLITIS ULCERATIVE
     Dosage: UNK UNK, 4X/DAY:QID
     Route: 048
     Dates: start: 20111224
  3. DIPIRONA [Concomitant]
     Indication: PRODUCT USED FOR UNKNOWN INDICATION
     Dosage: UNK, UNKNOWN
     Route: 065

REACTIONS (5)
  - TREATMENT FAILURE [None]
  - WRONG TECHNIQUE IN DRUG USAGE PROCESS [None]
  - URINARY TRACT INFECTION [None]
  - ANAEMIA [None]
  - DRUG PRESCRIBING ERROR [None]
